FAERS Safety Report 7824889-9 (Version None)
Quarter: 2011Q4

REPORT INFORMATION
  Report Type: 
  Country: None (occurrence: None)
  Receive Date: 20111019
  Receipt Date: 20110216
  Transmission Date: 20120403
  Serious: No
  Sender: FDA-Public Use
  Company Number: US-BRISTOL-MYERS SQUIBB COMPANY-15554934

PATIENT
  Age: 72 Year
  Sex: Female

DRUGS (2)
  1. AVALIDE [Suspect]
     Indication: HYPERTENSION
  2. TYLENOL W/ CODEINE [Concomitant]

REACTIONS (1)
  - ARTHRALGIA [None]
